FAERS Safety Report 4650940-3 (Version None)
Quarter: 2005Q2

REPORT INFORMATION
  Report Type: 
  Country: None (occurrence: None)
  Receive Date: 20050503
  Receipt Date: 20050422
  Transmission Date: 20051028
  Serious: Yes (Other)
  Sender: FDA-Public Use
  Company Number: US-GLAXOSMITHKLINE-A0555301A

PATIENT
  Age: 50 Year
  Sex: Male

DRUGS (1)
  1. NICORETTE (MINT) [Suspect]
     Indication: EX-SMOKER
     Dosage: 4MG TEN TIMES PER DAY
     Route: 002
     Dates: start: 20030101

REACTIONS (2)
  - DEPENDENCE [None]
  - DRUG ABUSER [None]
